FAERS Safety Report 8552603-0 (Version None)
Quarter: 2012Q3

REPORT INFORMATION
  Report Type: 
  Country: None (occurrence: None)
  Receive Date: 20120731
  Receipt Date: 20120717
  Transmission Date: 20120928
  Serious: Yes (Hospitalization)
  Sender: FDA-Public Use
  Company Number: US-MYLANLABS-2012S1014743

PATIENT
  Age: 42 Year
  Sex: Male

DRUGS (7)
  1. CHLORPROMAZINE HCL [Concomitant]
     Route: 065
  2. OMEPRAZOLE [Concomitant]
     Route: 065
  3. LEVOTHYROXINE SODIUM [Concomitant]
     Route: 065
  4. METFORMIN HYDROCHLORIDE [Concomitant]
     Route: 065
  5. BENZTROPINE MESYLATE [Concomitant]
     Route: 065
  6. LORAZEPAM [Concomitant]
     Route: 065
  7. CLOZAPINE [Suspect]
     Dosage: 700MG-800MG DAILY
     Route: 065

REACTIONS (3)
  - COLONIC PSEUDO-OBSTRUCTION [None]
  - FAECALOMA [None]
  - LARGE INTESTINAL OBSTRUCTION [None]
